FAERS Safety Report 14701203 (Version 1)
Quarter: 2018Q1

REPORT INFORMATION
  Report Type: Spontaneous
  Country: US (occurrence: US)
  Receive Date: 20180328
  Receipt Date: 20180328
  Transmission Date: 20180509
  Serious: Yes (Death)
  Sender: FDA-Public Use
  Company Number: None

PATIENT
  Age: 68 Year
  Sex: Male

DRUGS (1)
  1. REVLIMID [Suspect]
     Active Substance: LENALIDOMIDE
     Indication: PLASMA CELL MYELOMA
     Route: 048
     Dates: start: 20150730

REACTIONS (5)
  - Altered state of consciousness [None]
  - Tumour lysis syndrome [None]
  - Acute kidney injury [None]
  - Obstruction [None]
  - Hypercalcaemia [None]

NARRATIVE: CASE EVENT DATE: 20150803
